FAERS Safety Report 7901914-8 (Version None)
Quarter: 2011Q4

REPORT INFORMATION
  Report Type: 
  Country: None (occurrence: None)
  Receive Date: 20111107
  Receipt Date: 20111107
  Transmission Date: 20120403
  Serious: Yes (Death, Hospitalization)
  Sender: FDA-Public Use
  Company Number: None

PATIENT
  Sex: Male
  Weight: 101.5 kg

DRUGS (2)
  1. CISPLATIN [Suspect]
     Dosage: 167 MG
     Dates: end: 20111017
  2. PEMETREXED [Suspect]
     Dosage: 1115 MG
     Dates: end: 20111017

REACTIONS (1)
  - CEREBROVASCULAR ACCIDENT [None]
